FAERS Safety Report 9799851 (Version 1)
Quarter: 2014Q1

REPORT INFORMATION
  Report Type: Spontaneous
  Country: GB (occurrence: GB)
  Receive Date: 20140106
  Receipt Date: 20140106
  Transmission Date: 20141002
  Serious: Yes (Life-Threatening, Hospitalization)
  Sender: FDA-Public Use
  Company Number: GB-PFIZER INC-2014001708

PATIENT
  Age: 86 Year
  Sex: Female

DRUGS (9)
  1. DOXAZOSIN MESILATE [Suspect]
     Indication: HYPERTENSION
     Dosage: 2 MG, UNK
     Route: 048
     Dates: start: 20131221, end: 20131221
  2. ALENDRONIC ACID [Concomitant]
  3. AMLODIPINE [Concomitant]
  4. BENDROFLUMETHIAZIDE [Concomitant]
  5. CALCIUM AND VITAMIN D3 [Concomitant]
  6. FERROUS FUMARATE [Concomitant]
  7. OMEPRAZOLE [Concomitant]
  8. PREDNISOLONE [Concomitant]
  9. CANDESARTAN [Concomitant]
     Dosage: STOPPED BEFORE STARTING DOXAZOSIN DUE TO RENAL FUNCTION

REACTIONS (1)
  - Acute coronary syndrome [Recovered/Resolved]
